FAERS Safety Report 5603359-2 (Version None)
Quarter: 2008Q1

REPORT INFORMATION
  Report Type: 
  Country: None (occurrence: None)
  Receive Date: 20080122
  Receipt Date: 20080114
  Transmission Date: 20080703
  Serious: Yes (Other)
  Sender: FDA-Public Use
  Company Number: GXKR2008BE00730

PATIENT
  Age: 51 Year
  Sex: Female

DRUGS (3)
  1. AZATHIOPRINE [Suspect]
     Indication: IMMUNOSUPPRESSION
     Dates: start: 19950101
  2. CYCLOSPORINE [Suspect]
     Indication: IMMUNOSUPPRESSION
     Dates: start: 19950101
  3. PREDNISONE [Suspect]
     Indication: IMMUNOSUPPRESSION
     Dates: start: 19950101

REACTIONS (8)
  - COUGH [None]
  - EPSTEIN-BARR VIRUS INFECTION [None]
  - HAEMODIALYSIS [None]
  - LUNG NEOPLASM MALIGNANT [None]
  - METASTASIS [None]
  - NEPHROPATHY TOXIC [None]
  - SMOOTH MUSCLE CELL NEOPLASM [None]
  - WEIGHT DECREASED [None]
